FAERS Safety Report 19937174 (Version 1)
Quarter: 2021Q4

REPORT INFORMATION
  Report Type: Report from Study
  Country: FR (occurrence: FR)
  Receive Date: 20211010
  Receipt Date: 20211010
  Transmission Date: 20220303
  Serious: Yes (Hospitalization)
  Sender: FDA-Public Use
  Company Number: FR-SERVIER-S21011076

PATIENT

DRUGS (7)
  1. PEGASPARGASE [Suspect]
     Active Substance: PEGASPARGASE
     Indication: Acute lymphocytic leukaemia
     Dosage: 1675 IU, D8, D36
     Route: 042
     Dates: start: 20210325
  2. TN UNSPECIFIED [Concomitant]
     Indication: Acute lymphocytic leukaemia
     Dosage: 34 MG, D1 TO D21, D29 TO D36
     Route: 048
     Dates: start: 20210318
  3. TN UNSPECIFIED [Concomitant]
     Dosage: 35 MG, D8, D15, D22, D36
     Route: 048
     Dates: start: 20210325
  4. TN UNSPECIFIED [Concomitant]
     Dosage: 12 MG, D2, D30
     Route: 037
     Dates: start: 20210319
  5. TN UNSPECIFIED [Concomitant]
     Indication: Acute lymphocytic leukaemia
     Dosage: 1 MG, D1, D8, D29, D36
     Route: 042
     Dates: start: 20210318
  6. TN UNSPECIFIED [Concomitant]
     Indication: Acute lymphocytic leukaemia
     Dosage: 6 MG, D1 TO D5, D29 TO D33
     Route: 042
     Dates: start: 20210318
  7. TN UNSPECIFIED [Concomitant]
     Indication: Acute lymphocytic leukaemia
     Dosage: 35 MG, D1 TO D21, D29 TO D36
     Route: 048
     Dates: start: 20210318

REACTIONS (2)
  - Malaise [Recovered/Resolved]
  - Hypotonia [Recovered/Resolved]

NARRATIVE: CASE EVENT DATE: 20210407
